FAERS Safety Report 7817708-8 (Version None)
Quarter: 2011Q4

REPORT INFORMATION
  Report Type: 
  Country: None (occurrence: None)
  Receive Date: 20111017
  Receipt Date: 20111010
  Transmission Date: 20120403
  Serious: Yes (Other)
  Sender: FDA-Public Use
  Company Number: US-ABBOTT-11P-163-0854984-00

PATIENT
  Age: 33 Year
  Sex: Female

DRUGS (5)
  1. VIT D [Concomitant]
     Indication: PRODUCT USED FOR UNKNOWN INDICATION
  2. SYNTHROID [Concomitant]
     Indication: PRODUCT USED FOR UNKNOWN INDICATION
     Dosage: 25 MCG DAILY
  3. HUMIRA [Suspect]
     Indication: CROHN'S DISEASE
     Dates: start: 20110629, end: 20110919
  4. HUMIRA [Suspect]
     Dates: start: 20110919
  5. IRON [Concomitant]
     Indication: PRODUCT USED FOR UNKNOWN INDICATION

REACTIONS (6)
  - PAIN IN EXTREMITY [None]
  - THERAPEUTIC RESPONSE DECREASED [None]
  - SUBCUTANEOUS ABSCESS [None]
  - BLOOD COUNT ABNORMAL [None]
  - INJECTION SITE PAIN [None]
  - FATIGUE [None]
